FAERS Safety Report 4738150-2 (Version None)
Quarter: 2005Q3

REPORT INFORMATION
  Report Type: 
  Country: None (occurrence: None)
  Receive Date: 20050802
  Receipt Date: 20050715
  Transmission Date: 20060218
  Serious: Yes (Other)
  Sender: FDA-Public Use
  Company Number: B0388222A

PATIENT
  Age: 79 Year
  Sex: Female

DRUGS (7)
  1. ESKALITH [Suspect]
  2. ELECTROCONVULSIVE THERAPY (FORMULATION UNKNOWN) (ELECTROCONVULSIVE THE [Suspect]
  3. TRAZODONE [Concomitant]
  4. ENALAPRIL [Concomitant]
  5. HYDROCHLOROTHIAZIDE [Concomitant]
  6. THIOPENTONE SODIUM [Concomitant]
  7. PAROXETINE HYDROCHLORIDE [Concomitant]

REACTIONS (3)
  - ANXIETY [None]
  - APHASIA [None]
  - SIMPLE PARTIAL SEIZURES [None]
